FAERS Safety Report 6811906-8 (Version None)
Quarter: 2010Q3

REPORT INFORMATION
  Report Type: 
  Country: None (occurrence: None)
  Receive Date: 20100701
  Receipt Date: 20100115
  Transmission Date: 20110219
  Serious: Yes (Other)
  Sender: FDA-Public Use
  Company Number: US-ASTRAZENECA-2009SE25288

PATIENT
  Age: 54 Year
  Sex: Male
  Weight: 124.7 kg

DRUGS (7)
  1. SEROQUEL [Suspect]
     Indication: INJURY
     Route: 048
     Dates: start: 20000201
  2. SEROQUEL [Suspect]
     Dosage: 100 MG-200 MG
     Route: 048
     Dates: start: 20000420
  3. PAXIL [Concomitant]
     Dosage: 20 MG-40 MG
     Route: 048
     Dates: start: 20000420
  4. ARIPIPRAZOLE [Concomitant]
     Dosage: 20 MG ONE-HALF TABLET DAILY
     Dates: start: 20061201
  5. EZETIMIBE 10/SIMVASTATIN40MG [Concomitant]
     Indication: BLOOD CHOLESTEROL INCREASED
     Dosage: 10/40 MG, ONE DAILY
     Dates: start: 20061201
  6. TEMAZEPAM [Concomitant]
     Indication: INSOMNIA
     Dates: start: 20061201
  7. SIMVASTATIN [Concomitant]
     Route: 048
     Dates: start: 20000420

REACTIONS (2)
  - NEUROPATHY PERIPHERAL [None]
  - TYPE 2 DIABETES MELLITUS [None]
